FAERS Safety Report 17130569 (Version 1)
Quarter: 2019Q4

REPORT INFORMATION
  Report Type: Spontaneous
  Country: CN (occurrence: CN)
  Receive Date: 20191209
  Receipt Date: 20191209
  Transmission Date: 20200122
  Serious: Yes (Other)
  Sender: FDA-Public Use
  Company Number: CN-PURDUE-GBR-2019-0073498

PATIENT
  Age: 87 Year
  Sex: Male
  Weight: 60 kg

DRUGS (1)
  1. OXYCONTIN [Suspect]
     Active Substance: OXYCODONE HYDROCHLORIDE
     Indication: ANALGESIC THERAPY
     Dosage: 10 MG, Q12H
     Route: 048
     Dates: start: 20191101, end: 20191106

REACTIONS (4)
  - Disorganised speech [Unknown]
  - Irregular sleep wake rhythm disorder [Unknown]
  - Delirium [Recovered/Resolved]
  - Dysphoria [Unknown]

NARRATIVE: CASE EVENT DATE: 20191103
